FAERS Safety Report 8010278-3 (Version None)
Quarter: 2011Q4

REPORT INFORMATION
  Report Type: 
  Country: None (occurrence: None)
  Receive Date: 20111221
  Receipt Date: 20111208
  Transmission Date: 20120403
  Serious: Yes (Other)
  Sender: FDA-Public Use
  Company Number: B0769895A

PATIENT
  Age: 32 Year
  Sex: Male

DRUGS (5)
  1. AMPHOTERICIN B [Concomitant]
  2. ITRACONAZOLE [Concomitant]
  3. STAVUDINE [Suspect]
     Indication: HIV INFECTION
  4. LAMIVUDINE (EPIVIR HBV) [Suspect]
     Indication: HIV INFECTION
  5. EFAVIRENZ [Suspect]
     Indication: HIV INFECTION

REACTIONS (6)
  - PYREXIA [None]
  - SPLENOMEGALY [None]
  - SPLENIC ABSCESS [None]
  - HISTOPLASMOSIS DISSEMINATED [None]
  - IMMUNE RECONSTITUTION SYNDROME [None]
  - PAIN [None]
